FAERS Safety Report 9217537 (Version 2)
Quarter: 2013Q2

REPORT INFORMATION
  Report Type: Report from Study
  Country: US (occurrence: US)
  Receive Date: 20130408
  Receipt Date: 20130523
  Transmission Date: 20140414
  Serious: Yes (Other)
  Sender: FDA-Public Use
  Company Number: US-ROCHE-1209307

PATIENT
  Sex: 0

DRUGS (2)
  1. ALTEPLASE [Suspect]
     Indication: THROMBOSIS IN DEVICE
     Route: 042
  2. ALTEPLASE [Suspect]
     Route: 042

REACTIONS (1)
  - Contusion [Unknown]
